FAERS Safety Report 5904193-6 (Version None)
Quarter: 2008Q3

REPORT INFORMATION
  Report Type: 
  Country: None (occurrence: None)
  Receive Date: 20080930
  Receipt Date: 20080930
  Transmission Date: 20090109
  Serious: Yes (Other)
  Sender: FDA-Public Use
  Company Number: None

PATIENT
  Age: 70 Year
  Sex: Female
  Weight: 45.3597 kg

DRUGS (1)
  1. BONIVA [Suspect]
     Indication: OSTEOPENIA
     Dosage: ONCE A MONTH PO
     Route: 048

REACTIONS (6)
  - DYSPHAGIA [None]
  - EATING DISORDER [None]
  - EXOSTOSIS [None]
  - ORAL INFECTION [None]
  - TOOTH DISORDER [None]
  - TOOTH EXTRACTION [None]
